FAERS Safety Report 8843236 (Version 2)
Quarter: 2013Q1

REPORT INFORMATION
  Report Type: Spontaneous
  Country: US (occurrence: US)
  Receive Date: 20121016
  Receipt Date: 20130111
  Transmission Date: 20140127
  Serious: Yes (Hospitalization)
  Sender: FDA-Public Use
  Company Number: PHEH2012US020108

PATIENT
  Sex: Female

DRUGS (7)
  1. DIOVAN [Suspect]
     Indication: BLOOD PRESSURE
     Dosage: 80 MG, BID
     Route: 048
  2. DIOVAN [Suspect]
     Dosage: 40 MG, BID
     Route: 048
  3. DIOVAN [Suspect]
     Dosage: 0.5 DF 980 MG), BID
  4. AVAPRO [Suspect]
     Dosage: UNK UKN, UNK
  5. VALIUM [Concomitant]
     Dosage: 5 MG, PRN
  6. PERCOCET [Concomitant]
  7. HYDRALAZINE [Concomitant]

REACTIONS (6)
  - Cerebrovascular accident [Unknown]
  - Burning sensation [Unknown]
  - Wrong technique in drug usage process [Unknown]
  - Drug intolerance [Unknown]
  - Fatigue [Unknown]
  - Drug ineffective [Unknown]
